FAERS Safety Report 7113006-9 (Version None)
Quarter: 2010Q4

REPORT INFORMATION
  Report Type: 
  Country: None (occurrence: None)
  Receive Date: 20101119
  Receipt Date: 20101108
  Transmission Date: 20110411
  Serious: Yes (Other)
  Sender: FDA-Public Use
  Company Number: KZ-JNJFOC-20101103543

PATIENT
  Sex: Female

DRUGS (3)
  1. TOPAMAX [Suspect]
     Indication: EPILEPSY
     Dosage: 5 CAPSULES IN A DAY 3 IN THE MORNING AND 2 IN EVENING
     Route: 048
  2. TOPAMAX [Suspect]
     Route: 048
  3. CONVULEXETTE [Concomitant]
     Indication: EPILEPSY
     Route: 065

REACTIONS (5)
  - HEADACHE [None]
  - MENTAL IMPAIRMENT [None]
  - PERSONALITY DISORDER [None]
  - TABLET ISSUE [None]
  - URINE URIC ACID INCREASED [None]
